FAERS Safety Report 18814540 (Version 1)
Quarter: 2021Q1

REPORT INFORMATION
  Report Type: Spontaneous
  Country: US (occurrence: US)
  Receive Date: 20210131
  Receipt Date: 20210131
  Transmission Date: 20210419
  Serious: Yes (Other)
  Sender: FDA-Public Use
  Company Number: None

PATIENT
  Age: 41 Year
  Sex: Female
  Weight: 85.05 kg

DRUGS (1)
  1. CASIRIVIMAB 1,200 MG, IMDEVIMAB 1,200 MG [Suspect]
     Active Substance: CASIRIVIMAB\IMDEVIMAB
     Indication: COVID-19
     Route: 042
     Dates: start: 20210126, end: 20210126

REACTIONS (8)
  - Rash pruritic [None]
  - Infusion related reaction [None]
  - Dyspnoea [None]
  - Rash erythematous [None]
  - Nausea [None]
  - Dizziness [None]
  - Breath sounds abnormal [None]
  - Hypersensitivity [None]

NARRATIVE: CASE EVENT DATE: 20210126
